FAERS Safety Report 16066809 (Version 1)
Quarter: 2019Q1

REPORT INFORMATION
  Report Type: Spontaneous
  Country: US (occurrence: US)
  Receive Date: 20190212
  Receipt Date: 20190212
  Transmission Date: 20190418
  Serious: No
  Sender: FDA-Public Use
  Company Number: None

PATIENT
  Age: 80 Year
  Sex: Female

DRUGS (1)
  1. PROLIA [Suspect]
     Active Substance: DENOSUMAB
     Dates: start: 201806

REACTIONS (3)
  - Gait disturbance [None]
  - Poliomyelitis [None]
  - Walking aid user [None]

NARRATIVE: CASE EVENT DATE: 20180610
